FAERS Safety Report 5051975-1 (Version None)
Quarter: 2006Q3

REPORT INFORMATION
  Report Type: 
  Country: None (occurrence: None)
  Receive Date: 20060710
  Receipt Date: 20060626
  Transmission Date: 20061208
  Serious: Yes (Hospitalization, Other)
  Sender: FDA-Public Use
  Company Number: 2006080448

PATIENT
  Age: 76 Year
  Sex: Female

DRUGS (4)
  1. NEURONTIN [Suspect]
     Indication: PARAESTHESIA ORAL
     Dates: start: 20060101, end: 20060622
  2. ALL OTHER THERAPEUTIC PRODUCTS (ALL OTHER THERAPEUTIC PRODUCTS) [Suspect]
     Indication: PAIN
     Dates: start: 20060601
  3. ANTIHYPERTENSIVES [Concomitant]
  4. ALL OTHER THERAPEUTIC PRODUCTS [Concomitant]

REACTIONS (4)
  - CONFUSIONAL STATE [None]
  - INADEQUATE ANALGESIA [None]
  - PROCEDURAL PAIN [None]
  - SHOULDER OPERATION [None]
